FAERS Safety Report 4953620-X (Version None)
Quarter: 2006Q1

REPORT INFORMATION
  Report Type: 
  Country: None (occurrence: None)
  Receive Date: 20060324
  Receipt Date: 20051019
  Transmission Date: 20060701
  Serious: Yes (Hospitalization)
  Sender: FDA-Public Use
  Company Number: US-MERCK-0510USA07971

PATIENT
  Age: 46 Year
  Sex: Female
  Weight: 142 kg

DRUGS (7)
  1. VIOXX [Suspect]
     Indication: FIBROMYALGIA
     Route: 048
     Dates: start: 19990101
  2. VIOXX [Suspect]
     Indication: RHEUMATOID ARTHRITIS
     Route: 048
     Dates: start: 19990101
  3. LISINOPRIL [Concomitant]
     Route: 065
  4. TRIAMTERENE [Concomitant]
     Route: 065
  5. ESTRATEST [Concomitant]
     Route: 065
  6. ESTRADIOL [Concomitant]
     Route: 065
  7. PROZAC [Concomitant]
     Route: 065

REACTIONS (1)
  - CHEST PAIN [None]
